FAERS Safety Report 7375995-7 (Version None)
Quarter: 2011Q1

REPORT INFORMATION
  Report Type: 
  Country: None (occurrence: None)
  Receive Date: 20110325
  Receipt Date: 20110318
  Transmission Date: 20110831
  Serious: Yes (Other)
  Sender: FDA-Public Use
  Company Number: US-AMGEN-USASP2011015129

PATIENT
  Age: 50 Year
  Sex: Female

DRUGS (2)
  1. NEULASTA [Suspect]
     Indication: CHEMOTHERAPY
     Dosage: UNK MG, UNK
     Dates: start: 20110316
  2. ANTINEOPLASTIC AGENTS [Concomitant]

REACTIONS (1)
  - WHITE BLOOD CELL COUNT ABNORMAL [None]
